FAERS Safety Report 10214018 (Version 1)
Quarter: 2014Q2

REPORT INFORMATION
  Report Type: Spontaneous
  Country: AU (occurrence: None)
  Receive Date: 20140530
  Receipt Date: 20140530
  Transmission Date: 20141212
  Serious: Yes (Life-Threatening, Hospitalization)
  Sender: FDA-Public Use
  Company Number: 2014-001500

PATIENT
  Age: 41 Year
  Sex: Male

DRUGS (5)
  1. SARAFEM (FLUOXETINE HYDROCHLORIDE) TABLET, UNKMG [Suspect]
     Indication: INTENTIONAL OVERDOSE
     Dosage: 240MG, SINGLE, ORAL
     Route: 048
  2. QUETIAPINE (QUETIAPINE) [Suspect]
     Indication: INTENTIONAL OVERDOSE
     Dosage: 18G, SINGLE, ORAL
     Route: 048
  3. CARBAMAZEPINE (CARBAMAZEPIEN) MODIFIED-RELEASE TABLET [Suspect]
     Indication: INTENTIONAL OVERDOSE
     Dosage: 10G, SINGLE, ORAL
     Route: 048
  4. VALPROIC ACID (VALPROIC ACID) TABLET [Suspect]
     Indication: INTENTIONAL OVERDOSE
     Dosage: 35G, SINGLE, ORAL
     Route: 048
  5. OXAZEPAM (OXAZEPAM) [Suspect]
     Indication: INTENTIONAL OVERDOSE
     Dosage: 375MG, SINGLE, ORAL
     Route: 048

REACTIONS (9)
  - Distributive shock [None]
  - Coma [None]
  - Body temperature decreased [None]
  - Electrocardiogram QT prolonged [None]
  - Intentional overdose [None]
  - Hypotension [None]
  - Exposure via ingestion [None]
  - Toxicity to various agents [None]
  - Pneumonia aspiration [None]
